FAERS Safety Report 6569612-3 (Version None)
Quarter: 2010Q1

REPORT INFORMATION
  Report Type: 
  Country: None (occurrence: None)
  Receive Date: 20100129
  Receipt Date: 20100114
  Transmission Date: 20100710
  Serious: Yes (Other)
  Sender: FDA-Public Use
  Company Number: 002181

PATIENT
  Sex: Female
  Weight: 77.5651 kg

DRUGS (3)
  1. LACOSAMIDE [Suspect]
     Indication: EPILEPSY
     Dosage: 400 MG QD ORAL
     Route: 048
     Dates: start: 20090807, end: 20091013
  2. EPITOL [Concomitant]
  3. VALPROIC ACID [Concomitant]

REACTIONS (7)
  - ABORTION SPONTANEOUS [None]
  - BLIGHTED OVUM [None]
  - BLOOD PRESSURE INCREASED [None]
  - DRUG EXPOSURE DURING PREGNANCY [None]
  - HYPERLIPIDAEMIA [None]
  - PREGNANCY [None]
  - SMEAR CERVIX ABNORMAL [None]
